FAERS Safety Report 16793754 (Version 1)
Quarter: 2019Q3

REPORT INFORMATION
  Report Type: Spontaneous
  Country: US (occurrence: US)
  Receive Date: 20190911
  Receipt Date: 20190911
  Transmission Date: 20191005
  Serious: No
  Sender: FDA-Public Use
  Company Number: US-GLENMARK PHARMACEUTICALS-2019GMK042348

PATIENT

DRUGS (1)
  1. AZELAIC ACID GEL, 15% [Suspect]
     Active Substance: AZELAIC ACID
     Indication: PRODUCT USED FOR UNKNOWN INDICATION
     Dosage: UNK; THREE TIMES
     Route: 065

REACTIONS (3)
  - Product substitution issue [Unknown]
  - Skin texture abnormal [Unknown]
  - Skin swelling [Unknown]
